FAERS Safety Report 25272956 (Version 5)
Quarter: 2025Q4

REPORT INFORMATION
  Report Type: Report from Study
  Country: EG (occurrence: EG)
  Receive Date: 20250506
  Receipt Date: 20251111
  Transmission Date: 20260118
  Serious: Yes (Hospitalization, Other)
  Sender: BIOGEN
  Company Number: EG-BIOGEN-2025BI01309454

PATIENT
  Age: 25 Year
  Sex: Female
  Weight: 89 kg

DRUGS (8)
  1. TYSABRI [Suspect]
     Active Substance: NATALIZUMAB
     Indication: Multiple sclerosis
     Dosage: DOSAGE TEXT:300MG/15ML/IV
     Dates: start: 20221127
  2. TYSABRI [Suspect]
     Active Substance: NATALIZUMAB
     Dosage: DOSAGE TEXT:300MG/15ML/IV
     Dates: start: 202501
  3. SOLU-MEDROL [Suspect]
     Active Substance: METHYLPREDNISOLONE SODIUM SUCCINATE
     Indication: Multiple sclerosis relapse
     Dosage: DOSAGE TEXT:5 DOSES; BUT IF SHE GETS BETTER BEFORE THAT SHE SHOULD STOP THEM
  4. MINIRIN [Concomitant]
     Active Substance: DESMOPRESSIN ACETATE
     Indication: Product used for unknown indication
  5. Cymbatex [Concomitant]
     Indication: Neck pain
  6. Cymbatex [Concomitant]
     Indication: Back pain
  7. Gaptin [Concomitant]
     Indication: Neck pain
  8. Gaptin [Concomitant]
     Indication: Back pain

REACTIONS (7)
  - Multiple sclerosis relapse [Recovered/Resolved]
  - Lactation insufficiency [Unknown]
  - Prescribed underdose [Not Recovered/Not Resolved]
  - Maternal exposure during pregnancy [Not Recovered/Not Resolved]
  - Feeling hot [Unknown]
  - Caesarean section [Unknown]
  - Generalised oedema [Unknown]

NARRATIVE: CASE EVENT DATE: 20241201
